FAERS Safety Report 9291273 (Version 1)
Quarter: 2012Q4

REPORT INFORMATION
  Report Type: Spontaneous
  Country: US (occurrence: None)
  Receive Date: 20121022
  Receipt Date: 20121022
  Transmission Date: 20130627
  Serious: Yes (Hospitalization)
  Sender: FDA-Public Use
  Company Number: DAV-AE-MTX-12-74

PATIENT
  Age: 65 Year
  Sex: Male
  Weight: 96.8 kg

DRUGS (11)
  1. METHOTREXATE [Suspect]
     Indication: RHEUMATOID ARTHRITIS
     Route: 048
     Dates: start: 20090417
  2. HUMIRA [Suspect]
     Indication: RHEUMATOID ARTHRITIS
     Route: 058
     Dates: start: 20090417
  3. NORMORIX (MODURETIC) (HYDROCHLOROTHIAZIDE, AMILORIDE HYDROCHLORIDE) [Concomitant]
  4. METOPROLOL [Concomitant]
  5. ENALAPRIL [Concomitant]
  6. TROMBYL (ACETYLSALICYLIC ACID) [Concomitant]
  7. SERETIDE DISCUS (SERETIDE) (FLUTICASONE PROPIONATE, SALMETEROL XINAFOATE) [Concomitant]
  8. FOLACIN (FOLIC ACID) (FOLIC ACID) [Concomitant]
  9. ZOTON (LANSOPRAZOLE) (LANSOPRAZOLE) [Concomitant]
  10. ORUDIS RETARD [Concomitant]
  11. ALVEDON (PARACETAMOL) (PARACETAMOL) [Concomitant]

REACTIONS (2)
  - Pleurisy [None]
  - Pleural effusion [None]
